FAERS Safety Report 18647079 (Version 4)
Quarter: 2021Q2

REPORT INFORMATION
  Report Type: Report from Study
  Country: CA (occurrence: CA)
  Receive Date: 20201221
  Receipt Date: 20210525
  Transmission Date: 20210717
  Serious: Yes (Other)
  Sender: FDA-Public Use
  Company Number: CA-JNJFOC-20201228886

PATIENT
  Age: 70 Year
  Sex: Male
  Weight: 102.8 kg

DRUGS (2)
  1. REMICADE [Suspect]
     Active Substance: INFLIXIMAB
     Dosage: ON 22?APR?2021 PATIENT WAS RECEIVED LAST INFUSION.
     Route: 042
  2. REMICADE [Suspect]
     Active Substance: INFLIXIMAB
     Indication: COLITIS ULCERATIVE
     Dosage: ON 22?APR?2021 PATIENT WAS RECEIVED LAST INFUSION.
     Route: 042

REACTIONS (7)
  - Fall [Unknown]
  - Dizziness [Recovering/Resolving]
  - Tooth extraction [Recovered/Resolved]
  - Dyspnoea [Not Recovered/Not Resolved]
  - Gastrointestinal carcinoma [Unknown]
  - Tooth infection [Recovering/Resolving]
  - Nodule [Unknown]

NARRATIVE: CASE EVENT DATE: 20210201
